FAERS Safety Report 15956969 (Version 2)
Quarter: 2019Q1

REPORT INFORMATION
  Report Type: Spontaneous
  Country: GB (occurrence: US)
  Receive Date: 20190213
  Receipt Date: 20190311
  Transmission Date: 20190417
  Serious: Yes (Other)
  Sender: FDA-Public Use
  Company Number: GB-PFIZER INC-2019055345

PATIENT
  Sex: Female

DRUGS (3)
  1. XANAX [Suspect]
     Active Substance: ALPRAZOLAM
     Dosage: UNK
  2. PAXIL [Suspect]
     Active Substance: PAROXETINE HYDROCHLORIDE
  3. MEPROBAMATE. [Suspect]
     Active Substance: MEPROBAMATE

REACTIONS (3)
  - Balance disorder [Unknown]
  - Road traffic accident [Unknown]
  - Drug abuse [Unknown]

NARRATIVE: CASE EVENT DATE: 201712
